FAERS Safety Report 21464365 (Version 1)
Quarter: 2022Q4

REPORT INFORMATION
  Report Type: Spontaneous
  Country: CA (occurrence: CA)
  Receive Date: 20221017
  Receipt Date: 20221017
  Transmission Date: 20230112
  Serious: Yes (Hospitalization, Other)
  Sender: FDA-Public Use
  Company Number: CA-JNJFOC-20221025295

PATIENT
  Age: 48 Year
  Sex: Male

DRUGS (1)
  1. REMICADE [Suspect]
     Active Substance: INFLIXIMAB
     Indication: Cardiac sarcoidosis
     Route: 041

REACTIONS (5)
  - Atrial fibrillation [Unknown]
  - Cardioversion [Unknown]
  - Cardiac disorder [Unknown]
  - Complication associated with device [Unknown]
  - Off label use [Unknown]
